FAERS Safety Report 15130394 (Version 2)
Quarter: 2018Q3

REPORT INFORMATION
  Report Type: Spontaneous
  Country: NZ (occurrence: NZ)
  Receive Date: 20180711
  Receipt Date: 20180717
  Transmission Date: 20181010
  Serious: Yes (Death, Hospitalization, Other)
  Sender: FDA-Public Use
  Company Number: NZ-009507513-1807NZL004726

PATIENT
  Age: 69 Year
  Sex: Male

DRUGS (5)
  1. METHADONE HYDROCHLORIDE. [Concomitant]
     Active Substance: METHADONE HYDROCHLORIDE
     Indication: PAIN
     Dosage: 10 MG, TWICE DAILY
     Route: 048
     Dates: start: 20160608
  2. LAXOL (DOCUSATE SODIUM) [Concomitant]
     Indication: CONSTIPATION
     Dosage: 50MG+8MG SENNOSIDES, TWO TABLETS TWICE A DAY AS REQUIRED
     Route: 048
     Dates: start: 20160708
  3. FENTANYL. [Concomitant]
     Active Substance: FENTANYL
     Indication: PAIN
     Dosage: 50 MICROGRAM, EVERY 72H
     Route: 062
     Dates: start: 20160608
  4. PEMBROLIZUMAB. [Suspect]
     Active Substance: PEMBROLIZUMAB
     Indication: METASTATIC MALIGNANT MELANOMA
     Dosage: 2 MG/KG, Q 3 WEEKLY
     Route: 042
     Dates: start: 20160614, end: 20160614
  5. ACETAMINOPHEN. [Concomitant]
     Active Substance: ACETAMINOPHEN
     Indication: PAIN
     Dosage: 1000 MG, 4 TIMES DAILY
     Route: 048
     Dates: start: 20160708

REACTIONS (5)
  - Haematemesis [Unknown]
  - Malignant neoplasm progression [Fatal]
  - Depressed level of consciousness [Unknown]
  - Haemorrhage [Unknown]
  - Loss of consciousness [Unknown]

NARRATIVE: CASE EVENT DATE: 2018
